FAERS Safety Report 19807160 (Version 1)
Quarter: 2021Q3

REPORT INFORMATION
  Report Type: Spontaneous
  Country: US (occurrence: US)
  Receive Date: 20210908
  Receipt Date: 20210908
  Transmission Date: 20211014
  Serious: Yes (Death)
  Sender: FDA-Public Use
  Company Number: None

PATIENT
  Age: 73 Year
  Sex: Female
  Weight: 76 kg

DRUGS (4)
  1. DEXAMETHASONE. [Concomitant]
     Active Substance: DEXAMETHASONE
     Dates: start: 20210819, end: 20210827
  2. TOCILIZUMAB. [Suspect]
     Active Substance: TOCILIZUMAB
     Indication: COVID-19
     Dosage: ?          OTHER FREQUENCY:ONCE;?
     Route: 042
     Dates: start: 20210819, end: 20210819
  3. REMDESIVIR. [Concomitant]
     Active Substance: REMDESIVIR
     Dates: start: 20210819, end: 20210819
  4. SOLU?CORTEF [Concomitant]
     Active Substance: HYDROCORTISONE SODIUM SUCCINATE
     Dates: start: 20210905, end: 20210908

REACTIONS (8)
  - Pulmonary embolism [None]
  - Dyspnoea [None]
  - Aspergillus infection [None]
  - Stenotrophomonas infection [None]
  - Hyponatraemia [None]
  - Vascular device infection [None]
  - Hypotension [None]
  - Septic shock [None]

NARRATIVE: CASE EVENT DATE: 20210908
